FAERS Safety Report 7631386-2 (Version None)
Quarter: 2011Q3

REPORT INFORMATION
  Report Type: 
  Country: None (occurrence: None)
  Receive Date: 20110725
  Receipt Date: 20110715
  Transmission Date: 20111222
  Serious: Yes (Hospitalization, Other)
  Sender: FDA-Public Use
  Company Number: US-BAYER-201029549NA

PATIENT
  Age: 40 Year
  Sex: Female
  Weight: 61 kg

DRUGS (8)
  1. WELLBUTRIN XL [Concomitant]
     Indication: ANXIETY
     Dosage: 300 MG, UNK
  2. LOESTRIN 24 FE [Concomitant]
  3. PRISTIA [Concomitant]
     Indication: ANXIETY
     Dosage: UNK
     Dates: start: 20000101
  4. CITALOPRAM HYDROBROMIDE [Concomitant]
     Dosage: 20 MG, UNK
  5. CELEXA [Concomitant]
     Indication: ANXIETY
     Dosage: UNK
     Dates: start: 20000101
  6. YAZ [Suspect]
     Indication: PRODUCT USED FOR UNKNOWN INDICATION
     Dosage: UNK
     Route: 048
     Dates: start: 20080623, end: 20080714
  7. CELESTIA [Concomitant]
     Indication: ANXIETY
     Dosage: UNK
     Dates: start: 20000101
  8. SULFACETAMIDE SODIUM [SULFACETAMIDE] [Concomitant]
     Dosage: 10 %, UNK

REACTIONS (1)
  - PULMONARY EMBOLISM [None]
